FAERS Safety Report 16191875 (Version 3)
Quarter: 2020Q2

REPORT INFORMATION
  Report Type: Spontaneous
  Country: US (occurrence: US)
  Receive Date: 20190412
  Receipt Date: 20200603
  Transmission Date: 20200713
  Serious: Yes (Other)
  Sender: FDA-Public Use
  Company Number: US-SUNOVION-2019SUN001427

PATIENT
  Age: 63 Year
  Sex: Female

DRUGS (3)
  1. APTIOM [Suspect]
     Active Substance: ESLICARBAZEPINE ACETATE
     Dosage: UNK
     Route: 048
  2. APTIOM [Suspect]
     Active Substance: ESLICARBAZEPINE ACETATE
     Dosage: 1200 MG, QD (TWO TABLETS OF 600 MG AT NIGHT)
     Route: 048
  3. APTIOM [Suspect]
     Active Substance: ESLICARBAZEPINE ACETATE
     Dosage: 600 MG, BID
     Route: 048

REACTIONS (8)
  - Diabetes mellitus [Unknown]
  - Fall [Unknown]
  - Seizure [Unknown]
  - Stress [Unknown]
  - Hypertension [Unknown]
  - Intentional underdose [Unknown]
  - Off label use [Unknown]
  - Headache [Unknown]
